FAERS Safety Report 14631582 (Version 1)
Quarter: 2018Q1

REPORT INFORMATION
  Report Type: Spontaneous
  Country: DE (occurrence: DE)
  Receive Date: 20180313
  Receipt Date: 20180313
  Transmission Date: 20180509
  Serious: Yes (Hospitalization)
  Sender: FDA-Public Use
  Company Number: DE-JNJFOC-20180313714

PATIENT
  Age: 81 Year
  Sex: Female

DRUGS (1)
  1. XARELTO [Suspect]
     Active Substance: RIVAROXABAN
     Indication: ATRIAL FIBRILLATION
     Route: 048
     Dates: start: 20171024, end: 20171219

REACTIONS (4)
  - Basal ganglia haemorrhage [Recovering/Resolving]
  - Intraventricular haemorrhage [Recovering/Resolving]
  - Hypertensive crisis [Recovering/Resolving]
  - Hemiplegia [Recovering/Resolving]

NARRATIVE: CASE EVENT DATE: 20171219
